FAERS Safety Report 5750559-7 (Version None)
Quarter: 2008Q2

REPORT INFORMATION
  Report Type: 
  Country: None (occurrence: None)
  Receive Date: 20080523
  Receipt Date: 20080523
  Transmission Date: 20081010
  Serious: Yes (Hospitalization)
  Sender: FDA-Public Use
  Company Number: None

PATIENT
  Sex: Female
  Weight: 74 kg

DRUGS (1)
  1. MOXIFLOXACIN HCL [Suspect]
     Indication: URINARY TRACT INFECTION
     Dosage: 400MG  DAILY  PO
     Route: 048
     Dates: start: 20080520, end: 20080520

REACTIONS (2)
  - ARTHRALGIA [None]
  - MYALGIA [None]
